FAERS Safety Report 7824728-6 (Version None)
Quarter: 2011Q4

REPORT INFORMATION
  Report Type: 
  Country: None (occurrence: None)
  Receive Date: 20111019
  Receipt Date: 20111012
  Transmission Date: 20120403
  Serious: Yes (Other)
  Sender: FDA-Public Use
  Company Number: PHEH2010US03463

PATIENT
  Sex: Female

DRUGS (21)
  1. ASACOL [Concomitant]
  2. SPIRIVA [Concomitant]
  3. ALBUTEROL [Concomitant]
  4. VICODIN [Concomitant]
  5. OPIUM ^DAK^ [Suspect]
  6. PROTONIX [Concomitant]
  7. HUMULIN R [Concomitant]
  8. NEURONTIN [Concomitant]
  9. ZESTRIL [Concomitant]
  10. FLOVENT [Concomitant]
  11. PERCOCET [Concomitant]
  12. PENTASA [Concomitant]
  13. DILAUDID [Concomitant]
  14. ZOMETA [Suspect]
     Indication: OSTEOPENIA
     Dosage: UNK
     Dates: start: 20060101
  15. DEMEROL [Concomitant]
  16. WELLBUTRIN [Concomitant]
  17. SIMVASTATIN [Concomitant]
  18. TRIAMTERENE AND HYDROCHLOROTHIAZIDE [Concomitant]
  19. VANCOMYCIN HCL [Concomitant]
  20. AUGMENTIN '125' [Concomitant]
  21. TARCEVA [Concomitant]

REACTIONS (44)
  - PAIN [None]
  - LYMPHADENOPATHY [None]
  - IMPAIRED GASTRIC EMPTYING [None]
  - MASTICATION DISORDER [None]
  - EMOTIONAL DISTRESS [None]
  - ANXIETY [None]
  - ADRENAL DISORDER [None]
  - DIARRHOEA [None]
  - LEUKOCYTOSIS [None]
  - OSTEONECROSIS OF JAW [None]
  - INTERVERTEBRAL DISC SPACE NARROWING [None]
  - DUODENITIS [None]
  - CHRONIC SINUSITIS [None]
  - DIVERTICULITIS [None]
  - DEEP VEIN THROMBOSIS [None]
  - SLEEP APNOEA SYNDROME [None]
  - TOOTH LOSS [None]
  - FATIGUE [None]
  - ACTIVITIES OF DAILY LIVING IMPAIRED [None]
  - QUALITY OF LIFE DECREASED [None]
  - ATELECTASIS [None]
  - PERIODONTITIS [None]
  - OESOPHAGITIS [None]
  - DEFORMITY [None]
  - COLITIS ULCERATIVE [None]
  - GINGIVITIS [None]
  - BONE LOSS [None]
  - HIATUS HERNIA [None]
  - ILEUS [None]
  - INTERVERTEBRAL DISC DISORDER [None]
  - HYPERTENSION [None]
  - DIZZINESS [None]
  - OBSTRUCTIVE AIRWAYS DISORDER [None]
  - CARDIAC FAILURE CONGESTIVE [None]
  - PLEURAL EFFUSION [None]
  - PURULENT DISCHARGE [None]
  - CHRONIC OBSTRUCTIVE PULMONARY DISEASE [None]
  - INTERVERTEBRAL DISC DEGENERATION [None]
  - DRUG WITHDRAWAL SYNDROME [None]
  - HALLUCINATION [None]
  - GASTROOESOPHAGEAL REFLUX DISEASE [None]
  - LUNG NEOPLASM [None]
  - HEPATIC STEATOSIS [None]
  - DIARRHOEA HAEMORRHAGIC [None]
